FAERS Safety Report 11041444 (Version 2)
Quarter: 2015Q2

REPORT INFORMATION
  Report Type: Spontaneous
  Country: US (occurrence: US)
  Receive Date: 20150416
  Receipt Date: 20150525
  Transmission Date: 20150821
  Serious: No
  Sender: FDA-Public Use
  Company Number: US-JNJFOC-20140920951

PATIENT
  Age: 74 Year
  Sex: Male
  Weight: 93.44 kg

DRUGS (10)
  1. LIPITOR [Concomitant]
     Active Substance: ATORVASTATIN CALCIUM
     Indication: BLOOD CHOLESTEROL INCREASED
     Route: 048
  2. ALLOPURINOL. [Concomitant]
     Active Substance: ALLOPURINOL
     Indication: GOUT
     Route: 048
  3. LEXAPRO [Concomitant]
     Active Substance: ESCITALOPRAM OXALATE
     Indication: DEPRESSION
     Route: 048
  4. OMEGA-3 ACIDS [Concomitant]
     Active Substance: OMEGA-3 FATTY ACIDS
     Route: 048
  5. COQ10 [Concomitant]
     Active Substance: UBIDECARENONE
     Route: 048
  6. XARELTO [Suspect]
     Active Substance: RIVAROXABAN
     Indication: CEREBROVASCULAR ACCIDENT PROPHYLAXIS
     Route: 048
     Dates: start: 201408
  7. XARELTO [Suspect]
     Active Substance: RIVAROXABAN
     Indication: ATRIAL FIBRILLATION
     Route: 048
     Dates: start: 201408
  8. LISINOPRIL. [Concomitant]
     Active Substance: LISINOPRIL
     Indication: HYPERTENSION
     Route: 048
  9. LEXAPRO [Concomitant]
     Active Substance: ESCITALOPRAM OXALATE
     Indication: ANXIETY
     Route: 048
  10. TOPROL XL [Concomitant]
     Active Substance: METOPROLOL SUCCINATE
     Indication: CARDIAC DISORDER
     Route: 048

REACTIONS (3)
  - Paraesthesia [Not Recovered/Not Resolved]
  - Peripheral swelling [Not Recovered/Not Resolved]
  - Pain in extremity [Not Recovered/Not Resolved]

NARRATIVE: CASE EVENT DATE: 20140918
